FAERS Safety Report 9391466 (Version 1)
Quarter: 2013Q3

REPORT INFORMATION
  Report Type: Spontaneous
  Country: US (occurrence: US)
  Receive Date: 20130709
  Receipt Date: 20130709
  Transmission Date: 20140515
  Serious: Yes (Other)
  Sender: FDA-Public Use
  Company Number: US-ASTRAZENECA-2013SE49911

PATIENT
  Sex: Female

DRUGS (2)
  1. ARIMIDEX [Suspect]
     Indication: BLOOD OESTROGEN ABNORMAL
     Dosage: DAILY
     Route: 048
  2. FASLODEX [Suspect]
     Indication: BLOOD OESTROGEN ABNORMAL
     Dosage: ONCE A MONTH
     Route: 030

REACTIONS (2)
  - Breast cancer stage IV [Unknown]
  - Metastases to bone [Unknown]
